FAERS Safety Report 10070967 (Version 1)
Quarter: 2014Q2

REPORT INFORMATION
  Report Type: Spontaneous
  Country: US (occurrence: US)
  Receive Date: 20140410
  Receipt Date: 20140410
  Transmission Date: 20141212
  Serious: Yes (Other)
  Sender: FDA-Public Use
  Company Number: US-VIIV HEALTHCARE LIMITED-A1068760A

PATIENT
  Age: 47 Year
  Sex: Female

DRUGS (4)
  1. TIVICAY [Suspect]
     Indication: HIV INFECTION
     Dosage: 50MG PER DAY
     Route: 065
     Dates: start: 20140312, end: 20140403
  2. TRUVADA [Concomitant]
     Dates: start: 201106
  3. RALTEGRAVIR [Concomitant]
     Dates: start: 201106
  4. PERCOCET [Concomitant]

REACTIONS (3)
  - Erythema nodosum [Not Recovered/Not Resolved]
  - Local swelling [Not Recovered/Not Resolved]
  - Skin warm [Not Recovered/Not Resolved]
